FAERS Safety Report 5420822-8 (Version None)
Quarter: 2007Q3

REPORT INFORMATION
  Report Type: 
  Country: None (occurrence: None)
  Receive Date: 20070816
  Receipt Date: 20070802
  Transmission Date: 20080115
  Serious: Yes (Hospitalization)
  Sender: FDA-Public Use
  Company Number: 2007JP003479

PATIENT
  Age: 80 Year
  Sex: Male
  Weight: 68.2 kg

DRUGS (15)
  1. TACROLIMUS [Suspect]
     Indication: RHEUMATOID ARTHRITIS
     Dosage: 1.5 MG, UNKNOWN/D, ORAL
     Route: 048
     Dates: start: 20060925
  2. SULFASALAZINE [Concomitant]
  3. BUCILLAMINE [Concomitant]
  4. PREDNISOLONE [Concomitant]
  5. LOXONIN(LOXOPROFEN SODIUM) [Concomitant]
  6. NORVASC [Concomitant]
  7. CLARITHROMYCIN [Concomitant]
  8. AMARYL [Concomitant]
  9. NATEGLINIDE [Concomitant]
  10. ZANTAC 150 [Concomitant]
  11. SIGMART(NICORANDIL) [Concomitant]
  12. EBASTEL(EBASTINE) [Concomitant]
  13. DEPAS(ETIZOLAM) [Concomitant]
  14. CLEANAL(FUDOSTEINE) [Concomitant]
  15. METFORMIN HYDROCHLORIDE [Concomitant]

REACTIONS (5)
  - BASILAR ARTERY STENOSIS [None]
  - CEREBRAL ATROPHY [None]
  - CEREBRAL INFARCTION [None]
  - TRANSIENT ISCHAEMIC ATTACK [None]
  - VERTEBRAL ARTERY STENOSIS [None]
